FAERS Safety Report 11748009 (Version 1)
Quarter: 2015Q4

REPORT INFORMATION
  Report Type: Spontaneous
  Country: IL (occurrence: IL)
  Receive Date: 20151117
  Receipt Date: 20151117
  Transmission Date: 20160304
  Serious: Yes (Other)
  Sender: FDA-Public Use
  Company Number: IL-GLAXOSMITHKLINE-IL2015GSK160648

PATIENT
  Age: 66 Year
  Sex: Male

DRUGS (4)
  1. TAMBOCOR [Concomitant]
     Active Substance: FLECAINIDE ACETATE
  2. DUODART [Suspect]
     Active Substance: DUTASTERIDE\TAMSULOSIN
     Indication: BENIGN PROSTATIC HYPERPLASIA
     Dosage: 0.5 MG, UNK
     Route: 048
     Dates: start: 2015, end: 20151030
  3. OMEPRADEX [Concomitant]
     Active Substance: OMEPRAZOLE
  4. CARTIA (ACETYLSALICYLIC ACID) [Concomitant]
     Active Substance: ASPIRIN

REACTIONS (5)
  - Urine flow decreased [Unknown]
  - Drug ineffective [Unknown]
  - Urinary retention [Unknown]
  - Blood testosterone increased [Unknown]
  - Erectile dysfunction [Unknown]

NARRATIVE: CASE EVENT DATE: 201507
